FAERS Safety Report 20920541 (Version 1)
Quarter: 2022Q2

REPORT INFORMATION
  Report Type: Spontaneous
  Country: FR (occurrence: FR)
  Receive Date: 20220606
  Receipt Date: 20220606
  Transmission Date: 20220721
  Serious: Yes (Hospitalization)
  Sender: FDA-Public Use
  Company Number: None

PATIENT
  Age: 55 Year
  Sex: Female
  Weight: 78 kg

DRUGS (10)
  1. METRONIDAZOLE [Suspect]
     Active Substance: METRONIDAZOLE
     Indication: Serratia infection
     Dosage: 1 {DF}, QD, EVERY 8 HRS FOR 30 MIN (200 ML/H, 100ML)
     Route: 041
     Dates: start: 20220412, end: 20220422
  2. PIPERACILLIN SODIUM\TAZOBACTAM SODIUM [Suspect]
     Active Substance: PIPERACILLIN SODIUM\TAZOBACTAM SODIUM
     Indication: Serratia infection
     Dosage: 1 {DF}, QD, TAZOCILLINE PIPERACILLIN/TAZOBACTAM: SINCE 22/04 EVERY 8 HRS FOR 30 MIN 240 ML/H, 120ML
     Route: 065
     Dates: start: 20220422, end: 20220512
  3. PIPERACILLIN SODIUM [Suspect]
     Active Substance: PIPERACILLIN SODIUM
     Indication: Serratia infection
     Dosage: UNK, QD, PIPERACILLIN ALONE: FROM 14/04 TO 18/04: EVERY 8 HRS FOR 30 MIN (216 ML/H, 108ML)
     Route: 041
     Dates: start: 20220414, end: 20220419
  4. IRBESARTAN [Concomitant]
     Active Substance: IRBESARTAN
     Indication: Hypertension
     Dosage: 300 MG, QD
     Route: 048
     Dates: end: 20220419
  5. HYDROCHLOROTHIAZIDE [Concomitant]
     Active Substance: HYDROCHLOROTHIAZIDE
     Indication: Hypertension
     Route: 048
     Dates: end: 20220420
  6. DILTIAZEM HYDROCHLORIDE [Concomitant]
     Active Substance: DILTIAZEM HYDROCHLORIDE
     Indication: Hypertension
     Route: 048
     Dates: end: 20220422
  7. ALBUTEROL [Concomitant]
     Active Substance: ALBUTEROL
     Indication: Asthma
     Dosage: 2 PUFFS AS NEEDED
     Route: 055
  8. ATORVASTATIN [Concomitant]
     Active Substance: ATORVASTATIN
     Indication: Dyslipidaemia
     Route: 048
  9. CEFEPIME [Concomitant]
     Active Substance: CEFEPIME HYDROCHLORIDE
     Indication: Streptococcal bacteraemia
     Dosage: 1 {DF}, QD, EVERY 8 HRS FOR 30 MIN (200 ML/H, 100ML)
     Route: 041
     Dates: start: 20220419, end: 20220421
  10. VANCOMYCIN [Concomitant]
     Active Substance: VANCOMYCIN
     Indication: Bacterial infection
     Route: 042
     Dates: start: 20220419, end: 20220419

REACTIONS (1)
  - Nephropathy [Recovering/Resolving]

NARRATIVE: CASE EVENT DATE: 20220420
